FAERS Safety Report 24702214 (Version 2)
Quarter: 2025Q1

REPORT INFORMATION
  Report Type: Spontaneous
  Country: US (occurrence: US)
  Receive Date: 20241205
  Receipt Date: 20250107
  Transmission Date: 20250408
  Serious: Yes (Other)
  Sender: JOHNSON AND JOHNSON
  Company Number: US-JNJFOC-20241167111

PATIENT
  Age: 51 Year
  Sex: Male

DRUGS (1)
  1. XARELTO [Suspect]
     Active Substance: RIVAROXABAN
     Indication: Product used for unknown indication

REACTIONS (4)
  - Myocardial infarction [Unknown]
  - Product quality issue [Unknown]
  - Feeling hot [Unknown]
  - Cardiac discomfort [Unknown]

NARRATIVE: CASE EVENT DATE: 20220625
